FAERS Safety Report 10086169 (Version 1)
Quarter: 2014Q2

REPORT INFORMATION
  Report Type: Spontaneous
  Country: US (occurrence: None)
  Receive Date: 20140417
  Receipt Date: 20140417
  Transmission Date: 20141212
  Serious: Yes (Death)
  Sender: FDA-Public Use
  Company Number: None

PATIENT
  Age: 79 Year
  Sex: Female
  Weight: 90.72 kg

DRUGS (1)
  1. ACTEMRA [Suspect]

REACTIONS (6)
  - Dyspnoea [None]
  - Syncope [None]
  - Haemoptysis [None]
  - Asthenia [None]
  - Pain [None]
  - Pneumonia necrotising [None]
